FAERS Safety Report 12374786 (Version 2)
Quarter: 2016Q3

REPORT INFORMATION
  Report Type: Spontaneous
  Country: US (occurrence: US)
  Receive Date: 20160517
  Receipt Date: 20160712
  Transmission Date: 20161109
  Serious: No
  Sender: FDA-Public Use
  Company Number: US-PFIZER INC-2016243887

PATIENT
  Age: 34 Year
  Sex: Male
  Weight: 95 kg

DRUGS (1)
  1. VIAGRA [Suspect]
     Active Substance: SILDENAFIL CITRATE
     Indication: ERECTILE DYSFUNCTION
     Dosage: 100 MG, TOOK THE HALF

REACTIONS (2)
  - Drug ineffective [Not Recovered/Not Resolved]
  - Blood pressure increased [Unknown]
